FAERS Safety Report 7359406-3 (Version None)
Quarter: 2011Q1

REPORT INFORMATION
  Report Type: 
  Country: None (occurrence: None)
  Receive Date: 20110317
  Receipt Date: 20110308
  Transmission Date: 20110831
  Serious: Yes (Hospitalization)
  Sender: FDA-Public Use
  Company Number: US-ASTRAZENECA-2010SE22905

PATIENT
  Age: 16987 Day
  Sex: Female
  Weight: 95.2 kg

DRUGS (2)
  1. SEROQUEL [Suspect]
     Route: 048
  2. SEROQUEL [Suspect]
     Route: 048

REACTIONS (3)
  - HYPERTENSION [None]
  - HYSTERECTOMY [None]
  - PULMONARY CONGESTION [None]
